FAERS Safety Report 24679548 (Version 1)
Quarter: 2024Q4

REPORT INFORMATION
  Report Type: Report from Study
  Country: ZA (occurrence: ZA)
  Receive Date: 20241129
  Receipt Date: 20241129
  Transmission Date: 20250115
  Serious: Yes (Hospitalization)
  Sender: ALEXION PHARMACEUTICALS
  Company Number: ZA-AstraZeneca-CH-00757690A

PATIENT
  Age: 62 Year

DRUGS (16)
  1. DAPAGLIFLOZIN [Suspect]
     Active Substance: DAPAGLIFLOZIN
     Indication: Diabetes mellitus
     Dosage: 10 MILLIGRAM
  2. DAPAGLIFLOZIN [Suspect]
     Active Substance: DAPAGLIFLOZIN
     Dosage: 10 MILLIGRAM
  3. DAPAGLIFLOZIN [Suspect]
     Active Substance: DAPAGLIFLOZIN
     Dosage: 10 MILLIGRAM
  4. DAPAGLIFLOZIN [Suspect]
     Active Substance: DAPAGLIFLOZIN
     Dosage: 10 MILLIGRAM
  5. SIMVASTATIN [Concomitant]
     Active Substance: SIMVASTATIN
     Indication: Blood cholesterol
     Dosage: 10 MILLIGRAM
  6. SIMVASTATIN [Concomitant]
     Active Substance: SIMVASTATIN
     Dosage: 10 MILLIGRAM
  7. LOSARTAN POTASSIUM [Concomitant]
     Active Substance: LOSARTAN POTASSIUM
     Indication: Hypertension
     Dosage: 50 MILLIGRAM
  8. LOSARTAN POTASSIUM [Concomitant]
     Active Substance: LOSARTAN POTASSIUM
     Dosage: 50 MILLIGRAM
  9. METFORMIN HYDROCHLORIDE [Concomitant]
     Active Substance: METFORMIN HYDROCHLORIDE
     Indication: Diabetes mellitus
     Dosage: 500 MILLIGRAM
  10. METFORMIN HYDROCHLORIDE [Concomitant]
     Active Substance: METFORMIN HYDROCHLORIDE
     Dosage: 500 MILLIGRAM
  11. AMLODIPINE\INDAPAMIDE [Concomitant]
     Active Substance: AMLODIPINE\INDAPAMIDE
     Indication: Hypertension
     Dosage: 1.5 MILLIGRAM
  12. AMLODIPINE\INDAPAMIDE [Concomitant]
     Active Substance: AMLODIPINE\INDAPAMIDE
     Dosage: 1.5 MILLIGRAM
  13. Tendia [Concomitant]
     Indication: Diabetes mellitus
     Dosage: 60 MILLIGRAM
  14. Tendia [Concomitant]
     Dosage: 60 MILLIGRAM
  15. ETORICOXIB [Concomitant]
     Active Substance: ETORICOXIB
     Dosage: 60 MILLIGRAM
  16. ETORICOXIB [Concomitant]
     Active Substance: ETORICOXIB
     Dosage: 60 MILLIGRAM

REACTIONS (2)
  - Fall [Unknown]
  - Hand fracture [Unknown]
